FAERS Safety Report 14939556 (Version 2)
Quarter: 2018Q3

REPORT INFORMATION
  Report Type: Report from Study
  Country: US (occurrence: US)
  Receive Date: 20180525
  Receipt Date: 20180705
  Transmission Date: 20181010
  Serious: Yes (Other)
  Sender: FDA-Public Use
  Company Number: US-ALEXION PHARMACEUTICALS INC.-A201806402

PATIENT
  Sex: Female
  Weight: 63.95 kg

DRUGS (1)
  1. SOLIRIS [Suspect]
     Active Substance: ECULIZUMAB
     Indication: ATYPICAL HAEMOLYTIC URAEMIC SYNDROME
     Dosage: UNK
     Route: 065

REACTIONS (4)
  - Hepatic cancer [Not Recovered/Not Resolved]
  - Weight decreased [Unknown]
  - Colon cancer [Not Recovered/Not Resolved]
  - Adverse drug reaction [Unknown]
